FAERS Safety Report 13797057 (Version 1)
Quarter: 2017Q3

REPORT INFORMATION
  Report Type: Report from Study
  Country: None (occurrence: US)
  Receive Date: 20170727
  Receipt Date: 20170727
  Transmission Date: 20171127
  Serious: Yes (Hospitalization)
  Sender: FDA-Public Use
  Company Number: US-ABBVIE-17P-163-2047900-00

PATIENT
  Age: 70 Year
  Sex: Male

DRUGS (1)
  1. DUOPA [Suspect]
     Active Substance: CARBIDOPA\LEVODOPA
     Indication: PARKINSON^S DISEASE
     Route: 050
     Dates: start: 201607

REACTIONS (6)
  - Diarrhoea [Recovered/Resolved]
  - Muscle contracture [Recovered/Resolved]
  - Abdominal pain upper [Recovered/Resolved]
  - Back pain [Recovered/Resolved]
  - Nasopharyngitis [Recovered/Resolved]
  - Chest pain [Recovered/Resolved]

NARRATIVE: CASE EVENT DATE: 201707
